FAERS Safety Report 12936466 (Version 1)
Quarter: 2016Q4

REPORT INFORMATION
  Report Type: Spontaneous
  Country: NL (occurrence: NL)
  Receive Date: 20161114
  Receipt Date: 20161114
  Transmission Date: 20170207
  Serious: Yes (Hospitalization)
  Sender: FDA-Public Use
  Company Number: NL-JNJFOC-20161108005

PATIENT
  Age: 64 Year
  Sex: Male

DRUGS (14)
  1. HALOPERIDOL. [Suspect]
     Active Substance: HALOPERIDOL
     Indication: BIPOLAR DISORDER
     Route: 048
     Dates: start: 20161015
  2. FENTANYL. [Concomitant]
     Active Substance: FENTANYL
     Route: 062
  3. MOVICOLON [Concomitant]
     Active Substance: POLYETHYLENE GLYCOL 3350\POTASSIUM CHLORIDE\SODIUM BICARBONATE\SODIUM CHLORIDE
     Route: 048
  4. BIPERIDEN HYDROCHLORIDE [Concomitant]
     Active Substance: BIPERIDEN HYDROCHLORIDE
     Route: 048
  5. PROMETHAZINE HCL [Suspect]
     Active Substance: PROMETHAZINE HYDROCHLORIDE
     Indication: BIPOLAR DISORDER
     Route: 048
     Dates: start: 20161015
  6. OMEPRAZOLE MAGNESIUM. [Concomitant]
     Active Substance: OMEPRAZOLE MAGNESIUM
     Route: 048
  7. PERIO-AID [Concomitant]
     Route: 048
  8. QUETIAPINE. [Concomitant]
     Active Substance: QUETIAPINE
     Route: 048
  9. LEVOMEPROMAZINE MALEATE [Suspect]
     Active Substance: LEVOMEPROMAZINE MALEATE
     Indication: BIPOLAR DISORDER
     Route: 048
     Dates: start: 20161015
  10. ZUCLOPENTIXOL [Concomitant]
     Active Substance: ZUCLOPENTHIXOL
     Route: 051
  11. DAVITAMON [Concomitant]
     Route: 048
  12. VASELINE CETOMACROGOL CREAM [Concomitant]
     Route: 003
  13. DEPAKINE [Concomitant]
     Active Substance: VALPROATE SODIUM
     Route: 048
  14. OXAZEPAM. [Concomitant]
     Active Substance: OXAZEPAM
     Route: 048

REACTIONS (5)
  - Hypothermia [Recovered/Resolved]
  - Depressed level of consciousness [Recovered/Resolved]
  - Salivary hypersecretion [Recovered/Resolved]
  - Muscle rigidity [Recovered/Resolved]
  - Dry mouth [Recovered/Resolved]

NARRATIVE: CASE EVENT DATE: 20161016
